FAERS Safety Report 9310338 (Version 6)
Quarter: 2016Q2

REPORT INFORMATION
  Report Type: Spontaneous
  Country: US (occurrence: US)
  Receive Date: 20130527
  Receipt Date: 20160422
  Transmission Date: 20160815
  Serious: Yes (Death)
  Sender: FDA-Public Use
  Company Number: US-PFIZER INC-2013157543

PATIENT
  Age: 62 Year
  Sex: Male
  Weight: 83 kg

DRUGS (12)
  1. VFEND [Suspect]
     Active Substance: VORICONAZOLE
     Indication: FUNGAL INFECTION
     Dosage: 250 MG, UNK
     Route: 048
  2. VALTREX [Concomitant]
     Active Substance: VALACYCLOVIR HYDROCHLORIDE
     Dosage: 1 UNK, DAILY
  3. LIOTHYRONINE [Concomitant]
     Active Substance: LIOTHYRONINE
     Dosage: 1 UNK, DAILY
  4. AUGMENTIN [Concomitant]
     Active Substance: AMOXICILLIN\CLAVULANATE POTASSIUM
     Dosage: 1UNK, DAILY
  5. ZONISAMIDE. [Concomitant]
     Active Substance: ZONISAMIDE
     Dosage: 1 UNK, DAILY
  6. CALCIUM [Concomitant]
     Active Substance: CALCIUM
     Dosage: 1 UNK, DAILY
  7. PRILOSEC [Concomitant]
     Active Substance: OMEPRAZOLE MAGNESIUM
     Dosage: 1 UNK, DAILY
  8. LEVOTHYROXINE. [Concomitant]
     Active Substance: LEVOTHYROXINE
     Dosage: 1 UNK, DAILY
  9. FENOFIBRATE. [Concomitant]
     Active Substance: FENOFIBRATE
     Dosage: 1 UNK, DAILY
  10. METOPROLOL TARTRATE. [Concomitant]
     Active Substance: METOPROLOL TARTRATE
     Dosage: 1 UNK, DAILY
  11. PREDNISONE. [Concomitant]
     Active Substance: PREDNISONE
     Dosage: 1 UNK, DAILY
  12. BUMETANIDE. [Concomitant]
     Active Substance: BUMETANIDE
     Dosage: 1 UNK, DAILY

REACTIONS (1)
  - Death [Fatal]
